FAERS Safety Report 8986179 (Version 1)
Quarter: 2012Q4

REPORT INFORMATION
  Report Type: Spontaneous
  Country: US (occurrence: None)
  Receive Date: 20121219
  Receipt Date: 20121219
  Transmission Date: 20130627
  Serious: Yes (Hospitalization)
  Sender: FDA-Public Use
  Company Number: None

PATIENT
  Age: 72 Year
  Sex: Male
  Weight: 73 kg

DRUGS (10)
  1. ROSUVASTATIN [Suspect]
     Indication: HYPERCHOLESTEROLEMIA
     Dosage: prior to admission
     Route: 048
  2. CHOLECALCIFEROL [Concomitant]
  3. FOLIC ACID [Concomitant]
  4. METOPROLOL ER [Concomitant]
  5. MULTIVITAMIN [Concomitant]
  6. OMEGA-3 FATTY ACID [Concomitant]
  7. PANTOPRAZOLE [Concomitant]
  8. AZELASTINE [Concomitant]
  9. FLUTICASONE [Concomitant]
  10. ACETAMINOPHEN [Concomitant]

REACTIONS (2)
  - Rhabdomyolysis [None]
  - Pyrexia [None]
